FAERS Safety Report 19608942 (Version 2)
Quarter: 2021Q4

REPORT INFORMATION
  Report Type: Report from Study
  Country: US (occurrence: US)
  Receive Date: 20210726
  Receipt Date: 20211020
  Transmission Date: 20220303
  Serious: Yes (Hospitalization)
  Sender: FDA-Public Use
  Company Number: US-BIOVITRUM-2021US7015

PATIENT
  Age: 14 Year
  Sex: Male

DRUGS (1)
  1. KINERET [Suspect]
     Active Substance: ANAKINRA
     Indication: Pyrexia
     Route: 058
     Dates: start: 20190409

REACTIONS (5)
  - Pyrexia [Unknown]
  - Condition aggravated [Unknown]
  - Ear pain [Unknown]
  - Otitis externa [Unknown]
  - Off label use [Unknown]

NARRATIVE: CASE EVENT DATE: 20190409
